FAERS Safety Report 19884444 (Version 1)
Quarter: 2021Q3

REPORT INFORMATION
  Report Type: Spontaneous
  Country: JP (occurrence: JP)
  Receive Date: 20210927
  Receipt Date: 20210927
  Transmission Date: 20211014
  Serious: Yes (Other)
  Sender: FDA-Public Use
  Company Number: NVSJ2021JP014114

PATIENT
  Sex: Female

DRUGS (4)
  1. VALHYDIO [Suspect]
     Active Substance: HYDROCHLOROTHIAZIDE\VALSARTAN
     Dosage: 1 DF: VALSARTAN 80 MG, HYDROCHLOROTHIAZIDE 6.25 MG, 28 DAYS DOSE
     Route: 048
  2. VALHYDIO [Suspect]
     Active Substance: HYDROCHLOROTHIAZIDE\VALSARTAN
     Indication: PRODUCT USED FOR UNKNOWN INDICATION
     Dosage: 1 DF: VALSARTAN 80 MG, HYDROCHLOROTHIAZIDE 6.25 MG, 7 DAYS DOSE
     Route: 048
  3. ATENOLOL. [Suspect]
     Active Substance: ATENOLOL
     Indication: PRODUCT USED FOR UNKNOWN INDICATION
     Dosage: UNK, 7 DAYS DOSE
     Route: 048
  4. ATENOLOL. [Suspect]
     Active Substance: ATENOLOL
     Dosage: UNK, 28 DAYS DOSE
     Route: 048

REACTIONS (1)
  - Mitral valve incompetence [Unknown]
